FAERS Safety Report 17874142 (Version 3)
Quarter: 2020Q3

REPORT INFORMATION
  Report Type: Spontaneous
  Country: US (occurrence: US)
  Receive Date: 20200609
  Receipt Date: 20200909
  Transmission Date: 20201103
  Serious: No
  Sender: FDA-Public Use
  Company Number: US-BRISTOL-MYERS SQUIBB COMPANY-BMS-2020-045034

PATIENT
  Sex: Female

DRUGS (3)
  1. ZOMETA [Concomitant]
     Active Substance: ZOLEDRONIC ACID
     Indication: BONE DISORDER
     Dosage: 4 MG OF MONTH
     Route: 042
     Dates: start: 20200312, end: 20200312
  2. OPDIVO [Suspect]
     Active Substance: NIVOLUMAB
     Indication: TRANSITIONAL CELL CARCINOMA
  3. OPDIVO [Suspect]
     Active Substance: NIVOLUMAB
     Indication: METASTATIC RENAL CELL CARCINOMA
     Dosage: 240 MILLIGRAM, Q2WK
     Route: 042
     Dates: start: 20200323, end: 20200518

REACTIONS (6)
  - Haemoglobin decreased [Unknown]
  - Malaise [Unknown]
  - Decreased appetite [Unknown]
  - Abdominal pain [Unknown]
  - Back pain [Unknown]
  - Dehydration [Unknown]
